FAERS Safety Report 18050907 (Version 2)
Quarter: 2020Q3

REPORT INFORMATION
  Report Type: Spontaneous
  Country: US (occurrence: US)
  Receive Date: 20200721
  Receipt Date: 20200821
  Transmission Date: 20201103
  Serious: Yes (Congenital Anomaly)
  Sender: FDA-Public Use
  Company Number: NVSC2020US201022

PATIENT
  Sex: Female

DRUGS (6)
  1. ETOPOSIDE. [Suspect]
     Active Substance: ETOPOSIDE
     Indication: FOETAL EXPOSURE DURING PREGNANCY
     Dosage: 100 MG/M2, QD
     Route: 064
  2. BLEOMYCIN [Suspect]
     Active Substance: BLEOMYCIN SULFATE
     Indication: FOETAL EXPOSURE DURING PREGNANCY
     Dosage: 20 IU/M2
     Route: 064
  3. INDOMETHACIN. [Suspect]
     Active Substance: INDOMETHACIN
     Indication: FOETAL EXPOSURE DURING PREGNANCY
     Dosage: 50 MG, ONE HOUR PRIOR TO SURGERY
     Route: 064
  4. INDOMETHACIN. [Suspect]
     Active Substance: INDOMETHACIN
     Dosage: 25 MG, Q6H, FOR 72 H POSTOPERATIVELY
     Route: 065
  5. BETAMETHASONE. [Suspect]
     Active Substance: BETAMETHASONE
     Indication: FOETAL EXPOSURE DURING PREGNANCY
     Dosage: UNK
     Route: 064
  6. CISPLATIN. [Suspect]
     Active Substance: CISPLATIN
     Indication: FOETAL EXPOSURE DURING PREGNANCY
     Dosage: 20 MG/M2, QD
     Route: 064

REACTIONS (2)
  - Foetal exposure during pregnancy [Unknown]
  - Low birth weight baby [Unknown]
